FAERS Safety Report 6793215-9 (Version None)
Quarter: 2010Q2

REPORT INFORMATION
  Report Type: 
  Country: None (occurrence: None)
  Receive Date: 20100624
  Receipt Date: 20090928
  Transmission Date: 20101027
  Serious: Yes (Other)
  Sender: FDA-Public Use
  Company Number: US-MYLANLABS-2009S1014536

PATIENT
  Age: 60 Year
  Sex: Female

DRUGS (12)
  1. CLOZAPINE [Suspect]
     Indication: BIPOLAR DISORDER
     Route: 048
     Dates: start: 20081201, end: 20090805
  2. GLYBURIDE [Concomitant]
  3. GLUCOPHAGE [Concomitant]
  4. LITHIUM [Concomitant]
  5. LANTUS [Concomitant]
  6. PROTONIX [Concomitant]
  7. GENFIBROZILA [Concomitant]
  8. ASPIRIN [Concomitant]
  9. KLONOPIN [Concomitant]
  10. DEPAKOTE [Concomitant]
  11. THIAMINE [Concomitant]
  12. LAMICTAL [Concomitant]

REACTIONS (1)
  - GRANULOCYTOPENIA [None]
